FAERS Safety Report 10948633 (Version 1)
Quarter: 2015Q1

REPORT INFORMATION
  Report Type: Spontaneous
  Country: KR (occurrence: None)
  Receive Date: 20150320
  Receipt Date: 20150320
  Transmission Date: 20150721
  Serious: Yes (Other)
  Sender: FDA-Public Use
  Company Number: CO-OR-KR-2015-005

PATIENT
  Age: 49 Year
  Sex: Male

DRUGS (7)
  1. CYCLOPHOSPHAMIDE (UNKNOWN) [Suspect]
     Active Substance: CYCLOPHOSPHAMIDE
     Indication: B-CELL LYMPHOMA
     Dosage: 750 MG/M2, DAY 1 OF 6 CYCLES, 28-DAY INTERVAL
  2. DOXORUBICIN (UNKNOWN) [Suspect]
     Active Substance: DOXORUBICIN
     Indication: B-CELL LYMPHOMA
     Dosage: 50 MG/M2, DAY 1 OF 6 CYCLES, 28-DAY INTERVAL
  3. PREDNISOLONE (UNKNOWN) [Suspect]
     Active Substance: PREDNISOLONE
     Indication: B-CELL LYMPHOMA
     Dosage: 100 MG, DAYS 1-5 OF 6 CYCLES, 28-DAY INTERVAL
  4. RITUXIMAB [Suspect]
     Active Substance: RITUXIMAB
     Indication: B-CELL LYMPHOMA
     Dosage: 375 MG/M2 , DAY 1 OF 6 CYCLES, 28-DAY INTERVAL
  5. VINCRISTINE (UNKNOWN) [Suspect]
     Active Substance: VINCRISTINE
     Indication: B-CELL LYMPHOMA
     Dosage: 1.4 MG/M2, DAY 1 OF 6 CYCLES, 28-DAY INTERVAL
  6. METHOTREXATE (METHOTREXATE SODIUM) [Concomitant]
     Active Substance: METHOTREXATE SODIUM
     Indication: B-CELL LYMPHOMA
     Dosage: DAY 1 OF 6 CYCLES, 28-DAY INTERVAL
     Route: 037
  7. METHOTREXATE (METHOTREXATE SODIUM) [Concomitant]
     Active Substance: METHOTREXATE SODIUM
     Indication: B-CELL LYMPHOMA
     Dosage: 1 G/M2, DAY 21 OF 6 CYCLES, 28-DAY INTERVAL
     Route: 042

REACTIONS (1)
  - Neutropenia [None]
